FAERS Safety Report 5125284-6 (Version None)
Quarter: 2006Q4

REPORT INFORMATION
  Report Type: 
  Country: None (occurrence: None)
  Receive Date: 20061006
  Receipt Date: 20060926
  Transmission Date: 20070319
  Serious: Yes (Other)
  Sender: FDA-Public Use
  Company Number: 2006115234

PATIENT
  Sex: Female

DRUGS (5)
  1. LONITEN [Suspect]
     Dosage: 2.5 MG, 3 TABS TWICE A DAY
  2. AVAPRO [Suspect]
     Dosage: 150 MG, 1 IN 1 D
  3. CATAPRES [Suspect]
  4. LASIX [Suspect]
     Dosage: 40 MG (40 MG, 1 IN 1 D)
  5. POTASSIUM CHLORIDE [Suspect]
     Dosage: 10 MEQ

REACTIONS (3)
  - CARDIAC FAILURE CONGESTIVE [None]
  - DIABETES MELLITUS [None]
  - HEART RATE IRREGULAR [None]
